FAERS Safety Report 7640626-5 (Version None)
Quarter: 2011Q3

REPORT INFORMATION
  Report Type: 
  Country: None (occurrence: None)
  Receive Date: 20110721
  Receipt Date: 20110708
  Transmission Date: 20111222
  Serious: Yes (Other)
  Sender: FDA-Public Use
  Company Number: 2011AP001430

PATIENT
  Age: 51 Year
  Sex: Female

DRUGS (5)
  1. PREDNISOLONE [Concomitant]
  2. TACROLIMUS [Concomitant]
  3. AZATHIOPRINE [Concomitant]
  4. MYCOPHENOLATE MOFETIL [Suspect]
     Indication: IMMUNOSUPPRESSION
     Dosage: 2 G; QD
     Dates: start: 20040701
  5. ANTI-THYMOCYTE GLOBULIN NOS [Concomitant]

REACTIONS (1)
  - BRONCHIECTASIS [None]
